FAERS Safety Report 17309668 (Version 1)
Quarter: 2020Q1

REPORT INFORMATION
  Report Type: Spontaneous
  Country: US (occurrence: US)
  Receive Date: 20200123
  Receipt Date: 20200123
  Transmission Date: 20200409
  Serious: No
  Sender: FDA-Public Use
  Company Number: US-CELGENEUS-USA-20200106574

PATIENT
  Age: 77 Year
  Sex: Female
  Weight: 71 kg

DRUGS (18)
  1. ACYCLOVIR. [Concomitant]
     Active Substance: ACYCLOVIR
     Indication: NEOPLASM MALIGNANT
  2. PROTONIX [Concomitant]
     Active Substance: PANTOPRAZOLE SODIUM
     Indication: NEOPLASM MALIGNANT
  3. ASPIRIN. [Concomitant]
     Active Substance: ASPIRIN
     Indication: NEOPLASM MALIGNANT
     Route: 065
  4. LENALIDOMIDE [Suspect]
     Active Substance: LENALIDOMIDE
     Indication: PLASMA CELL MYELOMA
     Dosage: 25 MILLIGRAM
     Route: 048
     Dates: start: 20191227, end: 20200109
  5. METOPROLOL. [Concomitant]
     Active Substance: METOPROLOL
     Indication: BLOOD PRESSURE MEASUREMENT
     Route: 065
  6. LEVOTHYROXINE. [Concomitant]
     Active Substance: LEVOTHYROXINE
     Indication: THYROID DISORDER
  7. ACYCLOVIR. [Concomitant]
     Active Substance: ACYCLOVIR
     Indication: NEOPLASM MALIGNANT
  8. ASPIRIN. [Concomitant]
     Active Substance: ASPIRIN
     Indication: NEOPLASM MALIGNANT
  9. PROTONIX [Concomitant]
     Active Substance: PANTOPRAZOLE SODIUM
     Indication: THYROID DISORDER
  10. PROTONIX [Concomitant]
     Active Substance: PANTOPRAZOLE SODIUM
     Indication: NEOPLASM MALIGNANT
  11. ASPIRIN. [Concomitant]
     Active Substance: ASPIRIN
     Indication: NEOPLASM MALIGNANT
  12. ASPIRIN. [Concomitant]
     Active Substance: ASPIRIN
     Indication: THYROID DISORDER
  13. AMLODIPINE [Concomitant]
     Active Substance: AMLODIPINE BESYLATE
     Indication: BLOOD PRESSURE MEASUREMENT
     Route: 065
  14. PROTONIX [Concomitant]
     Active Substance: PANTOPRAZOLE SODIUM
     Indication: NEOPLASM MALIGNANT
     Route: 065
  15. LENALIDOMIDE [Suspect]
     Active Substance: LENALIDOMIDE
     Dosage: 15 MILLIGRAM
     Route: 048
     Dates: start: 2020
  16. ACYCLOVIR. [Concomitant]
     Active Substance: ACYCLOVIR
     Indication: THYROID DISORDER
  17. LEVOTHYROXINE. [Concomitant]
     Active Substance: LEVOTHYROXINE
     Indication: THYROID DISORDER
     Route: 065
  18. ACYCLOVIR. [Concomitant]
     Active Substance: ACYCLOVIR
     Indication: NEOPLASM MALIGNANT
     Route: 065

REACTIONS (2)
  - Blood urea increased [Not Recovered/Not Resolved]
  - Blood creatinine increased [Not Recovered/Not Resolved]

NARRATIVE: CASE EVENT DATE: 20200117
